FAERS Safety Report 8210504-1 (Version None)
Quarter: 2012Q1

REPORT INFORMATION
  Report Type: 
  Country: None (occurrence: None)
  Receive Date: 20120314
  Receipt Date: 20111102
  Transmission Date: 20120608
  Serious: No
  Sender: FDA-Public Use
  Company Number: US-ASTRAZENECA-2011SE66384

PATIENT
  Age: 55 Year
  Sex: Female

DRUGS (1)
  1. TOPROL-XL [Suspect]
     Indication: TACHYCARDIA
     Route: 048

REACTIONS (3)
  - PRESYNCOPE [None]
  - WEIGHT DECREASED [None]
  - ILL-DEFINED DISORDER [None]
